FAERS Safety Report 4867103-9 (Version None)
Quarter: 2005Q4

REPORT INFORMATION
  Report Type: 
  Country: None (occurrence: None)
  Receive Date: 20051222
  Receipt Date: 20051206
  Transmission Date: 20060501
  Serious: Yes (Other)
  Sender: FDA-Public Use
  Company Number: USA0511112464

PATIENT
  Sex: Female

DRUGS (5)
  1. FORTEO [Suspect]
     Indication: OSTEOPOROSIS
  2. COUMADIN [Concomitant]
  3. INDOCIN [Concomitant]
  4. PERCOCET [Concomitant]
  5. LIDODERM (LIDOCAINE) [Concomitant]

REACTIONS (4)
  - CARDIAC FAILURE CONGESTIVE [None]
  - NARCOLEPSY [None]
  - RENAL FAILURE ACUTE [None]
  - TREMOR [None]
